FAERS Safety Report 23825728 (Version 6)
Quarter: 2024Q3

REPORT INFORMATION
  Report Type: Spontaneous
  Country: DK (occurrence: DK)
  Receive Date: 20240507
  Receipt Date: 20240806
  Transmission Date: 20241016
  Serious: Yes (Hospitalization)
  Sender: PFIZER
  Company Number: DK-ROCHE-3551077

PATIENT
  Age: 62 Year
  Sex: Male
  Weight: 73 kg

DRUGS (30)
  1. DOXORUBICIN HYDROCHLORIDE [Suspect]
     Active Substance: DOXORUBICIN HYDROCHLORIDE
     Indication: Non-Hodgkin^s lymphoma
     Dosage: ON 11APR2024, MOST RECENT DOSE (97 MG) OF STUDY DRUG PRIOR TO AE/SAE
     Route: 042
     Dates: start: 20240411
  2. RITUXIMAB [Suspect]
     Active Substance: RITUXIMAB
     Indication: Diffuse large B-cell lymphoma
     Dosage: MOST RECENT DOSE (700 MG) OF STUDY DRUG PRIOR TO AE/SAE
     Route: 042
     Dates: start: 20240411
  3. CYCLOPHOSPHAMIDE [Suspect]
     Active Substance: CYCLOPHOSPHAMIDE
     Indication: Non-Hodgkin^s lymphoma
     Dosage: ON 11APR2024, MOST RECENT DOSE (1448 MG) OF STUDY DRUG PRIOR TO AE/SAE
     Route: 042
     Dates: start: 20240411
  4. POLATUZUMAB VEDOTIN [Suspect]
     Active Substance: POLATUZUMAB VEDOTIN
     Indication: Non-Hodgkin^s lymphoma
     Dosage: ON 11APR2024, MOST RECENT DOSE (131.4 MG) OF STUDY DRUG PRIOR TO AE/SAE
     Route: 042
     Dates: start: 20240411
  5. PREDNISONE [Concomitant]
     Active Substance: PREDNISONE
     Indication: Non-Hodgkin^s lymphoma
     Dosage: 100 MG, EVERY 3 WEEKS
     Route: 048
     Dates: start: 20240411
  6. PREDNISONE [Concomitant]
     Active Substance: PREDNISONE
     Dosage: RECEIVED THE MOST RECENT DOSE 100 MG  OF STUDY DRUG PREDNISONE  PRIOR TO AE/SAE
     Route: 048
     Dates: start: 20240415
  7. ACYCLOVIR [Concomitant]
     Active Substance: ACYCLOVIR
     Dosage: 800 MG, 1X/DAY
     Dates: start: 20240411
  8. ALLOPURINOL [Concomitant]
     Active Substance: ALLOPURINOL
     Dosage: 300 MG, 2X/DAY
     Dates: start: 20240411, end: 20240415
  9. AMLODIPINE [Concomitant]
     Active Substance: AMLODIPINE BESYLATE
     Indication: Hypertension
     Dosage: 10 MG, 1X/DAY
  10. CETIRIZINE [Concomitant]
     Active Substance: CETIRIZINE HYDROCHLORIDE
     Dosage: 10 MG, 1X/DAY
     Dates: start: 20240411
  11. CLARITHROMYCIN [Concomitant]
     Active Substance: CLARITHROMYCIN
     Indication: Sepsis
     Dosage: 500 MG, 2X/DAY
     Dates: start: 20240422, end: 20240429
  12. FILGRASTIM [Concomitant]
     Active Substance: FILGRASTIM
     Indication: Neutropenia
     Dosage: UNK
     Dates: start: 20240423, end: 20240423
  13. POTASSIUM CHLORIDE [Concomitant]
     Active Substance: POTASSIUM CHLORIDE
     Indication: Hypokalaemia
     Dosage: 3000 MG, 1X/DAY
     Dates: start: 20240423, end: 20240423
  14. LOPERAMIDE [Concomitant]
     Active Substance: LOPERAMIDE
     Indication: Diarrhoea
     Dosage: 4 MG, 4X/DAY
     Dates: start: 20240422, end: 20240422
  15. LORAZEPAM [Concomitant]
     Active Substance: LORAZEPAM
     Indication: Nausea
     Dosage: 1 MG, AS NEEDED
     Dates: start: 20240421, end: 20240429
  16. METOCLOPRAMIDE [Concomitant]
     Active Substance: METOCLOPRAMIDE
     Indication: Nausea
     Dosage: 10 MG, AS NEEDED
     Dates: start: 20240411, end: 20240421
  17. METOCLOPRAMIDE [Concomitant]
     Active Substance: METOCLOPRAMIDE
     Dosage: 10 MG, 3X/DAY
     Dates: start: 20240421, end: 20240429
  18. METOCLOPRAMIDE [Concomitant]
     Active Substance: METOCLOPRAMIDE
     Dosage: 10 MG, AS NEEDED
     Dates: start: 20240429
  19. SODIUM CHLORIDE [Concomitant]
     Active Substance: SODIUM CHLORIDE
     Indication: Dehydration
     Dosage: 1000 ML, AS NEEDED
     Dates: start: 20240422, end: 20240429
  20. ONDANSETRON [Concomitant]
     Active Substance: ONDANSETRON
     Indication: Nausea
     Dosage: 16 MG, 1X/DAY
     Dates: start: 20240411, end: 20240609
  21. PANTOPRAZOLE [Concomitant]
     Active Substance: PANTOPRAZOLE
     Dosage: 40 MG, 2X/DAY
     Dates: start: 20240422, end: 20240429
  22. PANTOPRAZOLE [Concomitant]
     Active Substance: PANTOPRAZOLE
     Dosage: 40 MG, 2X/DAY
     Route: 048
     Dates: start: 20240428, end: 20240617
  23. ACETAMINOPHEN [Concomitant]
     Active Substance: ACETAMINOPHEN
     Dosage: 1000 MG, AS NEEDED
     Dates: start: 20240411
  24. PEGFILGRASTIM [Concomitant]
     Active Substance: PEGFILGRASTIM
     Indication: Neutropenia
     Dosage: 6 MG, 1X/DAY
     Dates: start: 20240414, end: 20240414
  25. PIPERACILLIN [Concomitant]
     Active Substance: PIPERACILLIN
     Indication: Sepsis
     Dosage: 4 MG, 1X/DAY
     Dates: start: 20240421, end: 20240421
  26. PIPERACILLIN [Concomitant]
     Active Substance: PIPERACILLIN
     Dosage: 12 MG, 1X/DAY
     Dates: start: 20240421, end: 20240427
  27. SULFAMETHOXAZOLE AND TRIMETHOPRIM [Concomitant]
     Active Substance: SULFAMETHOXAZOLE\TRIMETHOPRIM
     Dosage: 1 DF, 2X/DAY
     Dates: start: 20240411
  28. TENOFOVIR DISOPROXIL [Concomitant]
     Active Substance: TENOFOVIR DISOPROXIL
     Dosage: 245 MG, 1X/DAY
     Dates: start: 20240325, end: 20240610
  29. NATRIUMGLYCEROPHOSPHAT [Concomitant]
     Indication: Hypophosphataemia
     Dosage: 30 ML, 1X/DAY
     Dates: start: 20240428, end: 20240428
  30. NUTRISION [Concomitant]
     Dosage: 200 ML EVERY 3 DAYS
     Dates: start: 20240429

REACTIONS (1)
  - Pneumonia [Recovered/Resolved]

NARRATIVE: CASE EVENT DATE: 20240416
